FAERS Safety Report 7686564-3 (Version None)
Quarter: 2011Q3

REPORT INFORMATION
  Report Type: 
  Country: None (occurrence: None)
  Receive Date: 20110816
  Receipt Date: 20110809
  Transmission Date: 20111222
  Serious: Yes (Hospitalization)
  Sender: FDA-Public Use
  Company Number: JP-MERCK-1108USA01626

PATIENT
  Age: 80 Year
  Sex: Male

DRUGS (6)
  1. AMLODIPINE BESYLATE [Concomitant]
     Route: 048
  2. MEXITIL [Concomitant]
     Route: 048
  3. STROMECTOL [Suspect]
     Indication: ACARODERMATITIS
     Route: 048
     Dates: start: 20110722, end: 20110722
  4. FLIVAS [Concomitant]
     Route: 048
  5. STROMECTOL [Suspect]
     Route: 048
     Dates: start: 20110727, end: 20110727
  6. LEXOTAN [Concomitant]
     Route: 048

REACTIONS (2)
  - RHABDOMYOLYSIS [None]
  - OVERDOSE [None]
